FAERS Safety Report 9160794 (Version 3)
Quarter: 2013Q2

REPORT INFORMATION
  Report Type: Spontaneous
  Country: IT (occurrence: IT)
  Receive Date: 20130313
  Receipt Date: 20130423
  Transmission Date: 20140414
  Serious: Yes (Hospitalization)
  Sender: FDA-Public Use
  Company Number: IT-UCBSA-080226

PATIENT
  Age: 56 Year
  Sex: Male

DRUGS (7)
  1. KEPPRA [Suspect]
     Indication: EPILEPSY
     Dosage: 1000 MG, 30
     Route: 048
     Dates: start: 20120101
  2. TOLEP [Suspect]
     Indication: EPILEPSY
     Dosage: 600 MG, 50
     Route: 048
     Dates: start: 20120101, end: 20121021
  3. METFORMIN HYDROCHLORIDE [Concomitant]
     Dosage: DOSE: 1500 MG
     Route: 048
  4. CARDIOASPIRIN [Concomitant]
     Dosage: DOSE: 1 DF, 100 MG
     Route: 048
  5. CRESTOR [Concomitant]
     Dosage: DOSE: 1 DF, 5 MG, 30 TABLETS
     Route: 048
  6. AGGRENOX [Concomitant]
     Dosage: 200 MG + 25 MG MODIFIED RELEASE CAPSULES HARD, 60 CAPSULES
  7. TRIATEC [Concomitant]
     Dosage: DOSE: 2.5 MG TABLETS, 28
     Route: 048

REACTIONS (3)
  - Abdominal pain upper [Recovered/Resolved]
  - Hyponatraemia [Recovered/Resolved]
  - Decreased appetite [Recovered/Resolved]
